FAERS Safety Report 22655313 (Version 2)
Quarter: 2024Q3

REPORT INFORMATION
  Report Type: Report from Study
  Country: US (occurrence: US)
  Receive Date: 20230629
  Receipt Date: 20240927
  Transmission Date: 20241016
  Serious: Yes (Hospitalization, Other)
  Sender: NOVARTIS
  Company Number: US-002147023-NVSC2023US146361

PATIENT
  Sex: Male

DRUGS (1)
  1. ENTRESTO [Suspect]
     Active Substance: SACUBITRIL\VALSARTAN
     Indication: Product used for unknown indication
     Dosage: 1 DOSAGE FORM (49/51 MG)
     Route: 048

REACTIONS (14)
  - Rash [Unknown]
  - Hypersensitivity [Unknown]
  - Dyspnoea [Unknown]
  - Pleural effusion [Unknown]
  - Gastrointestinal haemorrhage [Unknown]
  - Neoplasm malignant [Unknown]
  - Swelling [Unknown]
  - Blood potassium increased [Unknown]
  - Swelling face [Unknown]
  - Sleep disorder [Unknown]
  - Pruritus [Unknown]
  - Urticaria [Unknown]
  - Decreased appetite [Unknown]
  - Scratch [Unknown]
